FAERS Safety Report 8447139-1 (Version None)
Quarter: 2012Q2

REPORT INFORMATION
  Report Type: 
  Country: None (occurrence: None)
  Receive Date: 20120612
  Receipt Date: 20120531
  Transmission Date: 20120825
  Serious: Yes (Hospitalization)
  Sender: FDA-Public Use
  Company Number: DSA_57742_2012

PATIENT
  Sex: Female

DRUGS (7)
  1. SOLU-MEDROL [Concomitant]
  2. STELARA [Concomitant]
  3. MOXIFLOXACIN [Suspect]
     Indication: PRODUCT USED FOR UNKNOWN INDICATION
     Dosage: (400 MG, PER DAY ORAL)
     Route: 048
     Dates: start: 20120305, end: 20120322
  4. RIFADIN [Suspect]
     Indication: PRODUCT USED FOR UNKNOWN INDICATION
     Dosage: (600  MG, PER DAY ORAL)
     Route: 048
     Dates: start: 20120305, end: 20120322
  5. FLAGYL [Suspect]
     Indication: PRODUCT USED FOR UNKNOWN INDICATION
     Dosage: (DF ORAL)
     Route: 048
     Dates: start: 20120305, end: 20120322
  6. CYMBALTA [Concomitant]
  7. AMITRIPTYLINE HYDROCHLORIDE [Concomitant]

REACTIONS (7)
  - LEUKOCYTOSIS [None]
  - RENAL FAILURE ACUTE [None]
  - CYTOLYTIC HEPATITIS [None]
  - PYREXIA [None]
  - HAEMOLYTIC ANAEMIA [None]
  - JAUNDICE CHOLESTATIC [None]
  - DISSEMINATED INTRAVASCULAR COAGULATION [None]
